FAERS Safety Report 25236323 (Version 1)
Quarter: 2025Q2

REPORT INFORMATION
  Report Type: Spontaneous
  Country: US (occurrence: US)
  Receive Date: 20250424
  Receipt Date: 20250424
  Transmission Date: 20250717
  Serious: No
  Sender: CALLIDITAS THERAPEUTICS AB
  Company Number: US-Calliditas-2025CAL01044

PATIENT
  Age: 30 Year
  Sex: Female

DRUGS (6)
  1. TARPEYO [Suspect]
     Active Substance: BUDESONIDE
     Indication: IgA nephropathy
     Dosage: TAKE 4 CAPSULES (16 MG) BY MOUTH ONCE DAILY.
     Route: 048
     Dates: start: 20241109
  2. LASIX [Concomitant]
     Active Substance: FUROSEMIDE
  3. LABETALOL [Concomitant]
     Active Substance: LABETALOL
  4. LAMOTRIGINE [Concomitant]
     Active Substance: LAMOTRIGINE
  5. PRENATAL [ASCORBIC ACID;BETACAROTENE;CALCIUM CARBONATE;COLECALCIFER... [Concomitant]
  6. FILSPARI [Concomitant]
     Active Substance: SPARSENTAN

REACTIONS (1)
  - Nausea [Recovered/Resolved]
